FAERS Safety Report 9263995 (Version 1)
Quarter: 2013Q2

REPORT INFORMATION
  Report Type: Spontaneous
  Country: IT (occurrence: IT)
  Receive Date: 20130430
  Receipt Date: 20130430
  Transmission Date: 20140414
  Serious: Yes (Hospitalization)
  Sender: FDA-Public Use
  Company Number: IT-GLAXOSMITHKLINE-B0888315A

PATIENT
  Age: 89 Year
  Sex: Female

DRUGS (1)
  1. ARIXTRA [Suspect]
     Indication: ANGIOPATHY
     Dosage: 2.5MG PER DAY
     Route: 058
     Dates: start: 20130305, end: 20130318

REACTIONS (1)
  - Haematoma [Recovering/Resolving]
